FAERS Safety Report 5829044-X (Version None)
Quarter: 2008Q3

REPORT INFORMATION
  Report Type: 
  Country: None (occurrence: None)
  Receive Date: 20080731
  Receipt Date: 20080522
  Transmission Date: 20090109
  Serious: Yes (Hospitalization)
  Sender: FDA-Public Use
  Company Number: US-BRISTOL-MYERS SQUIBB COMPANY-14201792

PATIENT
  Age: 79 Year
  Sex: Female
  Weight: 61 kg

DRUGS (7)
  1. TEQUIN [Suspect]
     Indication: URINARY TRACT INFECTION
  2. MACROBID [Concomitant]
     Indication: URINARY TRACT INFECTION
     Dates: start: 20050101
  3. SYNTHROID [Concomitant]
     Dosage: 1 DOSAGE FORM = 0.125 (UNITS NOT SPECIFIED). RECEIVING FOR ABOUT ABOUT 17 YRS.
  4. DIOVAN [Concomitant]
  5. LUNESTA [Concomitant]
  6. AMBIEN [Concomitant]
     Dosage: TAKEN FOR 4 YEARS.
  7. ULTRAM [Concomitant]

REACTIONS (8)
  - HEART RATE INCREASED [None]
  - MALAISE [None]
  - MOVEMENT DISORDER [None]
  - PAIN [None]
  - POOR QUALITY SLEEP [None]
  - TENDON RUPTURE [None]
  - TINNITUS [None]
  - VULVOVAGINAL MYCOTIC INFECTION [None]
